FAERS Safety Report 9276887 (Version 1)
Quarter: 2013Q2

REPORT INFORMATION
  Report Type: Spontaneous
  Country: JP (occurrence: None)
  Receive Date: 20130501
  Receipt Date: 20130501
  Transmission Date: 20140414
  Serious: Yes (Other)
  Sender: FDA-Public Use
  Company Number: TCI2013A02377

PATIENT
  Age: 78 Year
  Sex: Female

DRUGS (6)
  1. ACTOS [Suspect]
     Indication: TYPE 2 DIABETES MELLITUS
     Dosage: 30 MG (30 MG, 1 D)?
     Route: 048
  2. UNISIA(CANDESARTAN CILEXETIL,AHLODIPINE BESILATE) [Concomitant]
  3. AMARYL(GLIMEPIRIDE) [Concomitant]
  4. KERLONG(BETAXOLOL HYDROCHLORIDE) [Concomitant]
  5. CRESTOR (ROSUVASTATIN CALCIUM) [Concomitant]
  6. BEZATOL(BEZAFIBRATE) [Concomitant]

REACTIONS (3)
  - Oedema peripheral [None]
  - Dyspnoea [None]
  - Brain natriuretic peptide increased [None]
